FAERS Safety Report 23960445 (Version 1)
Quarter: 2024Q2

REPORT INFORMATION
  Report Type: Spontaneous
  Country: PT (occurrence: PT)
  Receive Date: 20240611
  Receipt Date: 20240611
  Transmission Date: 20240715
  Serious: Yes (Hospitalization, Other)
  Sender: FDA-Public Use
  Company Number: PT-AUROBINDO-AUR-APL-2024-027614

PATIENT
  Age: 60 Year
  Sex: Male

DRUGS (3)
  1. OXALIPLATIN [Suspect]
     Active Substance: OXALIPLATIN
     Indication: Adenocarcinoma gastric
     Dosage: UNK, CYCLICAL (TOTAL OF 6 CYCLES OF ADJUVANT CHEMOTHERAPY)
     Route: 065
  2. EPIRUBICIN [Concomitant]
     Active Substance: EPIRUBICIN
     Indication: Adenocarcinoma gastric
     Dosage: UNK , CYCLICAL (TOTAL OF 6 CYCLES OF ADJUVANT CHEMOTHERAPY)
     Route: 065
  3. CAPECITABINE [Concomitant]
     Active Substance: CAPECITABINE
     Indication: Adenocarcinoma gastric
     Dosage: UNK, CYCLICAL (TOTAL OF 6 CYCLES OF ADJUVANT CHEMOTHERAPY)
     Route: 065

REACTIONS (1)
  - Venoocclusive liver disease [Unknown]
